FAERS Safety Report 10504067 (Version 1)
Quarter: 2014Q4

REPORT INFORMATION
  Report Type: Report from Study
  Country: US (occurrence: US)
  Receive Date: 20141008
  Receipt Date: 20141008
  Transmission Date: 20150528
  Serious: Yes (Other)
  Sender: FDA-Public Use
  Company Number: PHEH2014US019715

PATIENT
  Sex: Female
  Weight: 82.54 kg

DRUGS (24)
  1. AUBAGIO [Suspect]
     Active Substance: TERIFLUNOMIDE
  2. VITAMIN B12 [Concomitant]
     Active Substance: CYANOCOBALAMIN
  3. SUMATRIPTAN SUCCINATE. [Concomitant]
     Active Substance: SUMATRIPTAN SUCCINATE
  4. TERIFLUNOMIDE [Concomitant]
     Active Substance: TERIFLUNOMIDE
  5. GILENYA [Suspect]
     Active Substance: FINGOLIMOD HYDROCHLORIDE
     Indication: MULTIPLE SCLEROSIS
     Dosage: 0.5 MG, QD
  6. VITAMIN D [Concomitant]
     Active Substance: CHOLECALCIFEROL
  7. CLONAZEPAM. [Concomitant]
     Active Substance: CLONAZEPAM
  8. ASMANEX [Concomitant]
     Active Substance: MOMETASONE FUROATE
  9. TERBINAFIN [Concomitant]
     Active Substance: TERBINAFINE
  10. TOPMATE [Concomitant]
  11. TRAZODON [Concomitant]
     Active Substance: TRAZODONE HYDROCHLORIDE
  12. CARBAMAZEPINE. [Concomitant]
     Active Substance: CARBAMAZEPINE
  13. FOLIC ACID. [Concomitant]
     Active Substance: FOLIC ACID
  14. CYANOCOBALAMIN. [Concomitant]
     Active Substance: CYANOCOBALAMIN
  15. DULOXETINE [Concomitant]
     Active Substance: DULOXETINE
  16. MAGNESIUM [Concomitant]
     Active Substance: MAGNESIUM
  17. MVI-ADULT [Concomitant]
  18. PROMETHAZINE [Concomitant]
     Active Substance: PROMETHAZINE\PROMETHAZINE HYDROCHLORIDE
  19. MOMETASONE [Concomitant]
     Active Substance: MOMETASONE
  20. BUPROPION [Concomitant]
     Active Substance: BUPROPION
  21. ALBUTEROL. [Concomitant]
     Active Substance: ALBUTEROL
  22. IBUPROFEN. [Concomitant]
     Active Substance: IBUPROFEN
  23. MODAFINIL. [Concomitant]
     Active Substance: MODAFINIL
  24. CHOLECALCIFEROL [Concomitant]
     Active Substance: CHOLECALCIFEROL

REACTIONS (16)
  - Frustration [Unknown]
  - Dyspnoea [Recovering/Resolving]
  - Headache [Unknown]
  - Trigeminal neuralgia [Unknown]
  - Central nervous system lesion [Unknown]
  - Weight decreased [Recovering/Resolving]
  - Urinary retention [Unknown]
  - Fatigue [Recovering/Resolving]
  - Multiple sclerosis relapse [Unknown]
  - Constipation [Unknown]
  - Muscular weakness [Unknown]
  - Visual acuity reduced [Recovering/Resolving]
  - Wheezing [Recovering/Resolving]
  - Hemiparesis [Unknown]
  - Ataxia [Unknown]
  - Nystagmus [Unknown]

NARRATIVE: CASE EVENT DATE: 2013
